FAERS Safety Report 8934227 (Version 2)
Quarter: 2013Q1

REPORT INFORMATION
  Report Type: Spontaneous
  Country: US (occurrence: US)
  Receive Date: 20121129
  Receipt Date: 20130129
  Transmission Date: 20140127
  Serious: No
  Sender: FDA-Public Use
  Company Number: US-009507513-1211USA010846

PATIENT
  Age: 85 None
  Sex: Female

DRUGS (3)
  1. DULERA [Suspect]
     Indication: ASTHMA
     Dosage: 200MICROGRAM / 5MICROGRAM
     Route: 055
     Dates: start: 201206, end: 20121101
  2. NORVASC [Concomitant]
  3. METOPROLOL [Concomitant]

REACTIONS (3)
  - Blood pressure increased [Recovering/Resolving]
  - Drug dose omission [Unknown]
  - Expired drug administered [Unknown]
